FAERS Safety Report 6272525-8 (Version None)
Quarter: 2009Q3

REPORT INFORMATION
  Report Type: 
  Country: None (occurrence: None)
  Receive Date: 20090717
  Receipt Date: 20090708
  Transmission Date: 20100115
  Serious: Yes (Other)
  Sender: FDA-Public Use
  Company Number: PHHY2009BR28969

PATIENT
  Sex: Female

DRUGS (2)
  1. TEGRETOL [Suspect]
     Indication: HEAD INJURY
     Dosage: 200 MG
  2. CARBAMAZEPINE [Suspect]
     Dosage: UNK

REACTIONS (1)
  - CONVULSION [None]
